FAERS Safety Report 5697995-5 (Version None)
Quarter: 2008Q2

REPORT INFORMATION
  Report Type: 
  Country: None (occurrence: None)
  Receive Date: 20080408
  Receipt Date: 20080331
  Transmission Date: 20081010
  Serious: Yes (Hospitalization)
  Sender: FDA-Public Use
  Company Number: ZA-PFIZER INC-2008029213

PATIENT
  Age: 59 Year
  Sex: Male

DRUGS (4)
  1. VIAGRA [Suspect]
     Indication: PULMONARY HYPERTENSION
     Route: 048
  2. LASIX [Concomitant]
     Dosage: DAILY DOSE:40MG
  3. WARFARIN SODIUM [Concomitant]
  4. PREDNISONE [Concomitant]

REACTIONS (1)
  - RESPIRATORY FAILURE [None]
